FAERS Safety Report 21617790 (Version 2)
Quarter: 2022Q4

REPORT INFORMATION
  Report Type: Spontaneous
  Country: IE (occurrence: IE)
  Receive Date: 20221119
  Receipt Date: 20221122
  Transmission Date: 20230113
  Serious: Yes (Disabling)
  Sender: FDA-Public Use
  Company Number: IE-002147023-NVSC2022IE257823

PATIENT
  Age: 50 Year
  Sex: Female

DRUGS (2)
  1. GLIVEC [Suspect]
     Active Substance: IMATINIB MESYLATE
     Indication: Chronic myeloid leukaemia
     Dosage: UNK
     Route: 065
  2. TASIGNA [Suspect]
     Active Substance: NILOTINIB
     Indication: Product used for unknown indication
     Dosage: UNK
     Route: 065

REACTIONS (5)
  - Cognitive disorder [Unknown]
  - Asthenia [Unknown]
  - Amnesia [Unknown]
  - Emotional distress [Unknown]
  - Fatigue [Unknown]
